FAERS Safety Report 4297988-9 (Version None)
Quarter: 2004Q1

REPORT INFORMATION
  Report Type: 
  Country: None (occurrence: None)
  Receive Date: 20040218
  Receipt Date: 20011002
  Transmission Date: 20041129
  Serious: Yes (Other)
  Sender: FDA-Public Use
  Company Number: US-BRISTOL-MYERS SQUIBB COMPANY-11013265

PATIENT
  Sex: Female

DRUGS (10)
  1. STADOL [Suspect]
     Indication: MIGRAINE
     Route: 045
  2. STADOL [Suspect]
     Indication: MIGRAINE
  3. VANCENASE [Concomitant]
  4. ZOLOFT [Concomitant]
  5. VERELAN [Concomitant]
  6. PHENERGAN [Concomitant]
  7. DEPAKENE [Concomitant]
  8. NUBAIN [Concomitant]
  9. SERZONE [Concomitant]
  10. DIAMOX [Concomitant]

REACTIONS (2)
  - DRUG DEPENDENCE [None]
  - NAUSEA [None]
